FAERS Safety Report 5826305-5 (Version None)
Quarter: 2008Q3

REPORT INFORMATION
  Report Type: 
  Country: None (occurrence: None)
  Receive Date: 20080729
  Receipt Date: 20080723
  Transmission Date: 20090109
  Serious: Yes (Death, Life-Threatening, Hospitalization, Disabling, Other)
  Sender: FDA-Public Use
  Company Number: GB-MERCK-0701GBR00077

PATIENT
  Age: 63 Year
  Sex: Female
  Weight: 50 kg

DRUGS (16)
  1. FOSAMAX [Suspect]
     Route: 048
     Dates: start: 20061208
  2. ASPIRIN [Concomitant]
     Route: 048
  3. BENDROFLUMETHIAZIDE [Concomitant]
     Route: 048
  4. CALCIUM CARBONATE AND CHOLECALCIFEROL [Concomitant]
     Route: 048
  5. BENSERAZIDE HYDROCHLORIDE AND LEVODOPA [Concomitant]
     Route: 048
  6. DEXAMETHASONE [Concomitant]
  7. DEXAMETHASONE [Concomitant]
     Route: 048
  8. DIAZEPAM [Concomitant]
     Route: 048
  9. LANSOPRAZOLE [Concomitant]
     Route: 048
  10. THIAMINE [Concomitant]
     Route: 048
  11. LEVOTHYROXINE SODIUM [Concomitant]
     Route: 048
  12. IPRATROPIUM BROMIDE [Concomitant]
  13. BECLOMETHASONE DIPROPIONATE [Concomitant]
     Route: 065
  14. ACETAMINOPHEN AND CODEINE PHOSPHATE [Concomitant]
     Route: 065
  15. VITAMINS (UNSPECIFIED) [Concomitant]
     Route: 065
  16. ALBUTEROL [Concomitant]

REACTIONS (23)
  - AORTIC VALVE DISEASE [None]
  - ARTERIOSCLEROSIS CORONARY ARTERY [None]
  - BLOOD ALBUMIN DECREASED [None]
  - BLOOD ALKALINE PHOSPHATASE INCREASED [None]
  - BLOOD SODIUM DECREASED [None]
  - CELLULITIS [None]
  - CHOROID PLEXUS PAPILLOMA [None]
  - GASTROINTESTINAL INFLAMMATION [None]
  - HAEMOGLOBIN DECREASED [None]
  - HAEMOTHORAX [None]
  - HEART RATE DECREASED [None]
  - HEPATIC STEATOSIS [None]
  - HYPOTENSION [None]
  - LEFT VENTRICULAR HYPERTROPHY [None]
  - OESOPHAGEAL MUCOSAL HYPERPLASIA [None]
  - PERIPHERAL VASCULAR DISORDER [None]
  - PULMONARY OEDEMA [None]
  - PULSE ABSENT [None]
  - SKIN DISCOLOURATION [None]
  - SKIN EXFOLIATION [None]
  - TACHYCARDIA [None]
  - TOXIC EPIDERMAL NECROLYSIS [None]
  - WOUND SECRETION [None]
